FAERS Safety Report 4833259-7 (Version None)
Quarter: 2005Q4

REPORT INFORMATION
  Report Type: 
  Country: None (occurrence: None)
  Receive Date: 20051117
  Receipt Date: 20051107
  Transmission Date: 20060501
  Serious: Yes (Life-Threatening, Hospitalization)
  Sender: FDA-Public Use
  Company Number: GBS051119038

PATIENT
  Age: 84 Year
  Sex: Male
  Weight: 81 kg

DRUGS (1)
  1. DULOXETINE HYDROCHLORIDE [Suspect]
     Indication: DEPRESSION
     Dosage: 120 MG
     Dates: end: 20051025

REACTIONS (4)
  - BALANCE DISORDER [None]
  - FALL [None]
  - HYPONATRAEMIA [None]
  - SUBDURAL HAEMATOMA [None]
